FAERS Safety Report 5489108-X (Version None)
Quarter: 2007Q4

REPORT INFORMATION
  Report Type: 
  Country: None (occurrence: None)
  Receive Date: 20071018
  Receipt Date: 20071008
  Transmission Date: 20080405
  Serious: Yes (Hospitalization)
  Sender: FDA-Public Use
  Company Number: US-KINGPHARMUSA00001-K200700808

PATIENT

DRUGS (6)
  1. SKELAXIN [Suspect]
     Indication: MYALGIA
     Dosage: 800 MG, BID
     Dates: start: 20060101
  2. CELEBREX [Concomitant]
  3. PLAVIX [Concomitant]
  4. NEXIUM [Concomitant]
  5. ELMIRON [Concomitant]
  6. CENESTIN [Concomitant]
     Indication: HORMONE REPLACEMENT THERAPY

REACTIONS (1)
  - STEVENS-JOHNSON SYNDROME [None]
